FAERS Safety Report 19354646 (Version 2)
Quarter: 2021Q4

REPORT INFORMATION
  Report Type: Spontaneous
  Country: US (occurrence: US)
  Receive Date: 20210602
  Receipt Date: 20211019
  Transmission Date: 20220303
  Serious: Yes (Other)
  Sender: FDA-Public Use
  Company Number: US-UROGEN PHARMA LTD.-2021-UGN-000028

PATIENT
  Age: 72 Year
  Sex: Male

DRUGS (16)
  1. JELMYTO [Suspect]
     Active Substance: MITOMYCIN
     Indication: Transitional cell cancer of the renal pelvis and ureter
     Dosage: 9 MILLILITER, ONCE A WEEK, RETROGRADE INSTILLATION VIA URETERAL CATHETER
     Dates: start: 20210412, end: 20210412
  2. JELMYTO [Suspect]
     Active Substance: MITOMYCIN
     Dosage: 9 MILLILITER, ONCE A WEEK, RETROGRADE INSTILLATION VIA URETERAL CATHETER
     Dates: start: 20210419, end: 20210419
  3. JELMYTO [Suspect]
     Active Substance: MITOMYCIN
     Dosage: 9 MILLILITER, ONCE A WEEK, RETROGRADE INSTILLATION VIA URETERAL CATHETER
     Dates: start: 20210426, end: 20210426
  4. JELMYTO [Suspect]
     Active Substance: MITOMYCIN
     Dosage: 9 MILLILITER, ONCE A WEEK, RETROGRADE INSTILLATION VIA URETERAL CATHETER
     Dates: start: 20210503, end: 20210503
  5. JELMYTO [Suspect]
     Active Substance: MITOMYCIN
     Dosage: 9 MILLILITER, ONCE A WEEK, RETROGRADE INSTILLATION VIA URETERAL CATHETER
     Dates: start: 20210510, end: 20210510
  6. ALBUTEROL SULFATE [Concomitant]
     Active Substance: ALBUTEROL SULFATE
     Indication: Product used for unknown indication
  7. AMLODIPINE [Concomitant]
     Active Substance: AMLODIPINE BESYLATE
     Indication: Product used for unknown indication
  8. ASPIRIN [Concomitant]
     Active Substance: ASPIRIN
     Indication: Product used for unknown indication
  9. CITALOPRAM [Concomitant]
     Active Substance: CITALOPRAM HYDROBROMIDE
     Indication: Product used for unknown indication
  10. DIAZEPAM [Concomitant]
     Active Substance: DIAZEPAM
     Indication: Product used for unknown indication
  11. LISINOPRIL [Concomitant]
     Active Substance: LISINOPRIL
     Indication: Product used for unknown indication
  12. MELATONIN [Concomitant]
     Active Substance: MELATONIN
     Indication: Product used for unknown indication
  13. MIRTAZAPINE [Concomitant]
     Active Substance: MIRTAZAPINE
     Indication: Product used for unknown indication
  14. NITROGLYCERIN [Concomitant]
     Active Substance: NITROGLYCERIN
     Indication: Product used for unknown indication
  15. PRAVASTATIN [Concomitant]
     Active Substance: PRAVASTATIN
     Indication: Product used for unknown indication
  16. TEMAZEPAM [Concomitant]
     Active Substance: TEMAZEPAM
     Indication: Product used for unknown indication

REACTIONS (1)
  - Ureteric stenosis [Unknown]

NARRATIVE: CASE EVENT DATE: 20210524
